FAERS Safety Report 25758411 (Version 1)
Quarter: 2025Q3

REPORT INFORMATION
  Report Type: Spontaneous
  Country: US (occurrence: US)
  Receive Date: 20250904
  Receipt Date: 20250904
  Transmission Date: 20251021
  Serious: Yes (Other)
  Sender: CATALENT PHARMA SOLUTIONS
  Company Number: US-CATALENT PHARMA SOLUTIONS-CAT-001251-2025

PATIENT
  Sex: Male

DRUGS (2)
  1. VALPROIC ACID [Suspect]
     Active Substance: VALPROIC ACID
     Indication: Petit mal epilepsy
     Dosage: 28 MG/KG PER DAY
     Route: 065
  2. VALPROIC ACID [Suspect]
     Active Substance: VALPROIC ACID
     Dosage: 32 MG/KG PER DAY
     Route: 065

REACTIONS (1)
  - Hypothyroidism [Recovered/Resolved]
